FAERS Safety Report 7930115-2 (Version None)
Quarter: 2011Q4

REPORT INFORMATION
  Report Type: 
  Country: None (occurrence: None)
  Receive Date: 20111121
  Receipt Date: 20111114
  Transmission Date: 20120403
  Serious: Yes (Death, Hospitalization)
  Sender: FDA-Public Use
  Company Number: AT-GENZYME-CAMP-1002004

PATIENT
  Age: 49 Year
  Sex: Male

DRUGS (16)
  1. CYCLOPHOSPHAMIDE [Suspect]
     Dosage: 200 MG/M2, DAYS 1-3 (CYCLE 2)
     Route: 042
  2. CAMPATH [Suspect]
     Dosage: 30 MG, DAYS 1-3 (CYCLE 2)
     Route: 058
  3. CAMPATH [Suspect]
     Dosage: 30 MG, DAYS 1-3 (CYCLE 4)
     Route: 058
  4. FLUDARA [Suspect]
     Dosage: 200 MG/M2, DAYS 1-3 (CYCLE 4)
     Route: 042
  5. MITOXANTRONE [Suspect]
     Dosage: 6 MG/M2, DAY 1 (CYCLE 2)
     Route: 042
  6. MITOXANTRONE [Suspect]
     Dosage: 6 MG/M2, DAY 1 (CYCLE 4)
     Route: 042
  7. CYCLOPHOSPHAMIDE [Suspect]
     Dosage: 200 MG/M2, DAYS 1-3 (CYCLE 3)
     Route: 042
  8. CAMPATH [Suspect]
     Dosage: 30 MG, DAYS 1-3 (CYCLE 3)
     Route: 058
  9. FLUDARA [Suspect]
     Dosage: 200 MG/M2, DAYS 1-3 (CYCLE 2)
     Route: 042
  10. CYCLOPHOSPHAMIDE [Suspect]
     Indication: T-CELL PROLYMPHOCYTIC LEUKAEMIA
     Dosage: 200 MG/M2, DAYS 1-3 (CYCLE 1)
     Route: 042
  11. FLUDARA [Suspect]
     Dosage: 200 MG/M2, DAYS 1-3 (CYCLE 3)
     Route: 042
  12. MITOXANTRONE [Suspect]
     Indication: T-CELL PROLYMPHOCYTIC LEUKAEMIA
     Dosage: 6 MG/M2, DAY 1 (CYCLE 1)
     Route: 042
  13. CYCLOPHOSPHAMIDE [Suspect]
     Dosage: 200 MG/M2, DAYS 1-3 (CYCLE 4)
     Route: 042
  14. MITOXANTRONE [Suspect]
     Dosage: 6 MG/M2, DAY 1 (CYCLE 3)
     Route: 042
  15. CAMPATH [Suspect]
     Indication: T-CELL PROLYMPHOCYTIC LEUKAEMIA
     Dosage: 30 MG, DAYS 1-3 (CYCLE 1)
     Route: 058
  16. FLUDARA [Suspect]
     Indication: T-CELL PROLYMPHOCYTIC LEUKAEMIA
     Dosage: 200 MG/M2, DAYS 1-3 (CYCLE 1)
     Route: 042

REACTIONS (2)
  - GUILLAIN-BARRE SYNDROME [None]
  - T-CELL PROLYMPHOCYTIC LEUKAEMIA [None]
